FAERS Safety Report 6725855-7 (Version None)
Quarter: 2010Q2

REPORT INFORMATION
  Report Type: 
  Country: None (occurrence: None)
  Receive Date: 20100514
  Receipt Date: 20100506
  Transmission Date: 20101027
  Serious: Yes (Other)
  Sender: FDA-Public Use
  Company Number: PHHY2010CH28858

PATIENT
  Age: 76 Year
  Sex: Male

DRUGS (10)
  1. STALEVO 100 [Suspect]
     Indication: PARKINSON'S DISEASE
     Dosage: 5 X 325 MG/DAY
     Dates: start: 20080101
  2. SIFROL [Suspect]
     Indication: PARKINSON'S DISEASE
     Dosage: 0.25 MG/DAY
     Dates: start: 20090101, end: 20100101
  3. SINEMET [Suspect]
     Indication: PARKINSON'S DISEASE
     Dosage: 250 MG/DAY
     Dates: start: 20080101
  4. AMARYL [Concomitant]
     Dosage: 4 MG/DAY
  5. GLUCOPHAGE [Concomitant]
     Dosage: 850 MG/DAY
  6. NULYTELY [Concomitant]
     Dosage: 1 DOSAGE FORM/DAY
     Dates: start: 20100301
  7. LAXOBERON [Concomitant]
     Dosage: 15 GTTS/DAY
     Dates: start: 20100301
  8. FOLIC ACID [Concomitant]
     Dosage: 5 MG/DAY
     Dates: start: 20100301
  9. SEROQUEL [Concomitant]
     Dosage: 6.25 MG/DAY
     Dates: start: 20100301
  10. SERTRALINE HCL [Concomitant]
     Dosage: 25 MG/DAY
     Dates: start: 20100401

REACTIONS (3)
  - EXCESSIVE MASTURBATION [None]
  - HYPERSEXUALITY [None]
  - PSYCHOSEXUAL DISORDER [None]
